FAERS Safety Report 13163384 (Version 3)
Quarter: 2017Q1

REPORT INFORMATION
  Report Type: Spontaneous
  Country: JP (occurrence: JP)
  Receive Date: 20170130
  Receipt Date: 20170223
  Transmission Date: 20170428
  Serious: Yes (Life-Threatening, Hospitalization, Other)
  Sender: FDA-Public Use
  Company Number: JP-PFIZER INC-2016580985

PATIENT
  Age: 36 Year
  Sex: Female
  Weight: 55 kg

DRUGS (6)
  1. XYLOCAINE [Concomitant]
     Active Substance: LIDOCAINE HYDROCHLORIDE
     Indication: LOCAL ANAESTHESIA
     Dosage: 20.00 ML, 1X/DAY
     Route: 058
     Dates: start: 20160128, end: 20160128
  2. PROPOFOL. [Suspect]
     Active Substance: PROPOFOL
     Indication: INDUCTION AND MAINTENANCE OF ANAESTHESIA
     Dosage: 10 ML/HR
     Route: 041
     Dates: start: 20160128, end: 20160128
  3. PRECEDEX [Suspect]
     Active Substance: DEXMEDETOMIDINE HYDROCHLORIDE
     Dosage: 0.7 MCG/KG/HR
     Route: 041
     Dates: start: 20160128, end: 20160128
  4. SOLDEM 3A [Concomitant]
     Active Substance: CARBOHYDRATES\POTASSIUM CHLORIDE\SODIUM CHLORIDE\SODIUM LACTATE
     Indication: FLUID REPLACEMENT
     Dosage: 40 ML/HR (1 IN 1 DAY)
     Route: 041
     Dates: start: 20160128, end: 20160128
  5. PRECEDEX [Suspect]
     Active Substance: DEXMEDETOMIDINE HYDROCHLORIDE
     Indication: INDUCTION AND MAINTENANCE OF ANAESTHESIA
     Dosage: 4 MCG/KG/HR (LOADING DOSE)
     Route: 041
     Dates: start: 20160128, end: 20160128
  6. PROPOFOL. [Suspect]
     Active Substance: PROPOFOL
     Indication: INDUCTION OF ANAESTHESIA
     Dosage: 4.00 ML, UNK
     Route: 041
     Dates: start: 20160128, end: 20160128

REACTIONS (1)
  - Sinus arrest [Recovering/Resolving]

NARRATIVE: CASE EVENT DATE: 20160128
